FAERS Safety Report 22989170 (Version 2)
Quarter: 2023Q4

REPORT INFORMATION
  Report Type: Report from Study
  Country: MX (occurrence: MX)
  Receive Date: 20230927
  Receipt Date: 20231102
  Transmission Date: 20240109
  Serious: Yes (Other)
  Sender: FDA-Public Use
  Company Number: MX-JNJFOC-20230949645

PATIENT
  Age: 66 Year
  Sex: Female
  Weight: 83 kg

DRUGS (1)
  1. SIMPONI [Suspect]
     Active Substance: GOLIMUMAB
     Indication: Psoriatic arthropathy
     Route: 058
     Dates: start: 20230723

REACTIONS (13)
  - Knee operation [Unknown]
  - Psoriatic arthropathy [Unknown]
  - Infection [Unknown]
  - Giardiasis [Recovered/Resolved]
  - Pharyngitis [Recovered/Resolved]
  - Gastric infection [Unknown]
  - Respiratory disorder [Unknown]
  - Hunger [Unknown]
  - Decreased immune responsiveness [Unknown]
  - Weight decreased [Unknown]
  - Fall [Unknown]
  - Gastritis [Unknown]
  - Weight increased [Unknown]
